FAERS Safety Report 5971511-2 (Version None)
Quarter: 2008Q4

REPORT INFORMATION
  Report Type: 
  Country: None (occurrence: None)
  Receive Date: 20081201
  Receipt Date: 20081121
  Transmission Date: 20090506
  Serious: Yes (Hospitalization)
  Sender: FDA-Public Use
  Company Number: US-ELI_LILLY_AND_COMPANY-US200810000689

PATIENT
  Sex: Male

DRUGS (18)
  1. PEMETREXED [Suspect]
     Indication: NON-SMALL CELL LUNG CANCER
     Dosage: 500 MG/M2, OTHER
     Route: 042
     Dates: start: 20080731
  2. FOLIC ACID [Concomitant]
     Indication: VITAMIN SUPPLEMENTATION
     Dates: start: 20080731
  3. VITAMIN B-12 [Concomitant]
     Indication: VITAMIN SUPPLEMENTATION
     Dates: start: 20080731
  4. DEXAMETHASONE [Concomitant]
     Dates: start: 20080731
  5. ADVAIR DISKUS 100/50 [Concomitant]
     Indication: ASTHMA
     Dosage: 1 D/F, 2/D
  6. ALBUTEROL [Concomitant]
     Indication: DYSPNOEA
     Dosage: UNK, AS NEEDED
  7. ASPIRIN [Concomitant]
     Indication: ANTICOAGULANT THERAPY
     Dosage: 81 MG, DAILY (1/D)
  8. COLCHICINE [Concomitant]
     Indication: ARTHRITIS
     Dosage: 0.6 MG, 2/D
  9. COZAAR [Concomitant]
     Indication: BLOOD PRESSURE
     Dosage: 50 MG, DAILY (1/D)
     Dates: end: 20080906
  10. DESYREL [Concomitant]
     Indication: DEPRESSION
     Dosage: 100 MG, EACH EVENING
  11. LEVEMIR [Concomitant]
     Indication: DIABETES MELLITUS
     Dosage: 10 U, EACH EVENING
  12. LEXAPRO [Concomitant]
     Indication: DEPRESSION
     Dosage: 20 MG, DAILY (1/D)
  13. TIZANIDINE HCL [Concomitant]
     Indication: MUSCLE SPASTICITY
     Dosage: 4 MG, EACH EVENING
  14. COREG [Concomitant]
     Indication: HYPERTENSION
     Dosage: 3.125 MG, 2/D
     Dates: end: 20080906
  15. LIDODERM [Concomitant]
     Indication: PAIN
     Dosage: 1 D/F, DAILY (1/D)
  16. MEGACE [Concomitant]
     Indication: CACHEXIA
     Dosage: 625 MG, DAILY (1/D)
  17. COUMADIN [Concomitant]
     Indication: DEEP VEIN THROMBOSIS
     Dosage: UNK, UNK
  18. COUMADIN [Concomitant]
     Dosage: 6 MG, DAILY (1/D)
     Dates: start: 20080901

REACTIONS (2)
  - CARDIAC FAILURE CONGESTIVE [None]
  - PANCYTOPENIA [None]
